FAERS Safety Report 4431462-1 (Version None)
Quarter: 2004Q3

REPORT INFORMATION
  Report Type: 
  Country: None (occurrence: None)
  Receive Date: 20040820
  Receipt Date: 20040820
  Transmission Date: 20050211
  Serious: Yes (Hospitalization)
  Sender: FDA-Public Use
  Company Number: None

PATIENT
  Age: 57 Year
  Sex: Male
  Weight: 68.9467 kg

DRUGS (1)
  1. ZOLOFT [Suspect]
     Indication: DEPRESSION
     Dosage: 50MG DAILY ORAL
     Route: 048
     Dates: start: 20040703, end: 20040715

REACTIONS (3)
  - BLOOD BLISTER [None]
  - DERMATITIS BULLOUS [None]
  - NODULE [None]
